FAERS Safety Report 13358133 (Version 6)
Quarter: 2017Q2

REPORT INFORMATION
  Report Type: Report from Study
  Country: BE (occurrence: BE)
  Receive Date: 20170322
  Receipt Date: 20170504
  Transmission Date: 20170830
  Serious: Yes (Hospitalization)
  Sender: FDA-Public Use
  Company Number: BE-ROCHE-1909101

PATIENT
  Age: 68 Year
  Sex: Male
  Weight: 96 kg

DRUGS (42)
  1. NOBITEN [Concomitant]
     Active Substance: NEBIVOLOL
     Indication: HYPERTENSION
     Route: 065
     Dates: start: 2000
  2. LIPANTHYL [Concomitant]
     Active Substance: FENOFIBRATE
     Route: 065
     Dates: start: 1985
  3. LORAZEPAN [Concomitant]
     Active Substance: LORAZEPAM
     Indication: INSOMNIA
     Route: 065
     Dates: start: 1985
  4. NOVALGIN [Concomitant]
     Active Substance: METAMIZOLE SODIUM
     Indication: NECK PAIN
     Route: 065
     Dates: start: 201610
  5. DIPIPERON [Concomitant]
     Active Substance: PIPAMPERONE
     Indication: INSOMNIA
     Route: 065
     Dates: start: 20161214
  6. DEXAMETHASONE. [Concomitant]
     Active Substance: DEXAMETHASONE
     Indication: CHEMOTHERAPY
     Route: 065
     Dates: start: 20170305
  7. NYSTATINE [Concomitant]
     Indication: MOUTH ULCERATION
     Route: 065
     Dates: start: 20170313, end: 20170320
  8. HYPROMELLOSE [Concomitant]
     Active Substance: HYPROMELLOSES
     Indication: MOUTH ULCERATION
     Dosage: 4000
     Route: 065
     Dates: start: 20170313, end: 20170320
  9. ASAFLOW [Concomitant]
     Active Substance: ASPIRIN
     Route: 065
     Dates: start: 1991
  10. LITICAN [Concomitant]
     Active Substance: ALIZAPRIDE HYDROCHLORIDE
     Indication: NAUSEA
     Route: 065
     Dates: start: 20170214, end: 20170218
  11. ULTRA K [Concomitant]
     Indication: HYPOKALAEMIA
     Route: 065
     Dates: start: 20170228, end: 20170322
  12. ULTRA K [Concomitant]
     Indication: HYPOMAGNESAEMIA
     Route: 065
     Dates: start: 20170228
  13. GLYCEROL [Concomitant]
     Active Substance: GLYCERIN
     Indication: MOUTH ULCERATION
     Route: 065
     Dates: start: 20170313, end: 20170320
  14. CISPLATIN. [Suspect]
     Active Substance: CISPLATIN
     Indication: NON-SMALL CELL LUNG CANCER STAGE IV
     Dosage: DATE OF THE MOST RECENT DOSE PRIOR TO THE EVENT ONSET: 13/FEB/2017 OF 120 MG?INITIAL DOSE PER PROTOC
     Route: 042
     Dates: start: 20161212
  15. ZOMETA [Concomitant]
     Active Substance: ZOLEDRONIC ACID
     Indication: METASTASES TO BONE
     Route: 065
     Dates: start: 20161219
  16. DAKTARIN [Concomitant]
     Active Substance: MICONAZOLE NITRATE
     Indication: FUNGAL INFECTION
     Route: 048
     Dates: start: 20170109
  17. RBC^S [Concomitant]
     Route: 065
     Dates: start: 20170317, end: 20170320
  18. ITRACONAZOLE. [Concomitant]
     Active Substance: ITRACONAZOLE
     Indication: NEUTROPENIA
     Route: 065
     Dates: start: 20170227, end: 20170304
  19. ATEZOLIZUMAB [Suspect]
     Active Substance: ATEZOLIZUMAB
     Indication: NON-SMALL CELL LUNG CANCER STAGE IV
     Dosage: DATE OF THE MOST RECENT DOSE PRIOR TO THE EVENT ONSET: 06/MAR/2017?DATE OF THE MOST RECENT DOSE PRIO
     Route: 042
     Dates: start: 20161212
  20. BURINEX [Concomitant]
     Active Substance: BUMETANIDE
     Route: 065
     Dates: start: 20170404
  21. METFORMAX [Concomitant]
     Active Substance: METFORMIN HYDROCHLORIDE
     Indication: HYPERGLYCAEMIA
     Route: 065
     Dates: start: 1985, end: 20170327
  22. FOLAVIT [Concomitant]
     Indication: PROPHYLACTIC CHEMOTHERAPY
     Route: 065
     Dates: start: 20161205
  23. ARANESP [Concomitant]
     Active Substance: DARBEPOETIN ALFA
     Indication: ANAEMIA
     Route: 065
     Dates: start: 20161226
  24. RBC^S [Concomitant]
     Dosage: 2 UNITS
     Route: 065
     Dates: start: 20170314, end: 20170314
  25. ITRACONAZOLE. [Concomitant]
     Active Substance: ITRACONAZOLE
     Route: 065
     Dates: start: 20170313, end: 20170316
  26. LIDOCAINE HCL [Concomitant]
     Active Substance: LIDOCAINE HYDROCHLORIDE
     Indication: MOUTH ULCERATION
     Route: 065
     Dates: start: 20170313, end: 20170320
  27. POTASSIUM CHLORIDE. [Concomitant]
     Active Substance: POTASSIUM CHLORIDE
     Dosage: 80 MEQ/24H
     Route: 065
     Dates: start: 20170316, end: 20170321
  28. BURINEX [Concomitant]
     Active Substance: BUMETANIDE
     Indication: OEDEMA
     Route: 065
     Dates: start: 20170227, end: 20170322
  29. VITAMINE B12 ROCHE [Concomitant]
     Indication: PROPHYLACTIC CHEMOTHERAPY
     Route: 065
     Dates: start: 20161205
  30. DEXAMETHASONE. [Concomitant]
     Active Substance: DEXAMETHASONE
     Indication: PROPHYLACTIC CHEMOTHERAPY
     Route: 065
     Dates: start: 20170212, end: 20170214
  31. PEMETREXED. [Suspect]
     Active Substance: PEMETREXED
     Indication: NON-SMALL CELL LUNG CANCER STAGE IV
     Dosage: DATE OF THE MOST RECENT DOSE PRIOR TO THE EVENT ONSET: 06/MAR/2017 OF 1050 MG?INITIAL DOSE PER PROTO
     Route: 042
     Dates: start: 20161212
  32. D-CURE [Concomitant]
     Indication: METASTASES TO BONE
     Route: 065
     Dates: start: 20161205
  33. EMEND [Concomitant]
     Active Substance: APREPITANT
     Indication: NAUSEA
     Route: 065
     Dates: start: 20170214, end: 20170215
  34. LITICAN [Concomitant]
     Active Substance: ALIZAPRIDE HYDROCHLORIDE
     Route: 065
     Dates: start: 20170316, end: 20170321
  35. RBC^S [Concomitant]
     Indication: ANAEMIA
     Dosage: 1 UNIT
     Route: 065
     Dates: start: 20170214, end: 20170215
  36. RBC^S [Concomitant]
     Route: 065
     Dates: start: 20170228, end: 20170228
  37. TINZAPARIN [Concomitant]
     Active Substance: TINZAPARIN
     Indication: DERMATITIS
     Route: 065
     Dates: start: 20170306
  38. ALCOHOL. [Concomitant]
     Active Substance: ALCOHOL
     Indication: MOUTH ULCERATION
     Route: 065
     Dates: start: 20170313, end: 20170320
  39. TERAZOSAB [Concomitant]
     Indication: PROSTATISM
     Route: 065
     Dates: start: 2006
  40. ALLOPURINOL. [Concomitant]
     Active Substance: ALLOPURINOL
     Indication: HYPERURICAEMIA
     Route: 065
     Dates: start: 1986
  41. OFLOXACINE [Concomitant]
     Active Substance: OFLOXACIN
     Indication: NEUTROPENIA
     Route: 065
     Dates: start: 20170227, end: 20170304
  42. OFLOXACINE [Concomitant]
     Active Substance: OFLOXACIN
     Route: 065
     Dates: start: 20170313, end: 20170316

REACTIONS (3)
  - Vasculitis [Recovered/Resolved with Sequelae]
  - Dermatitis [Recovered/Resolved with Sequelae]
  - Dehydration [Recovered/Resolved]

NARRATIVE: CASE EVENT DATE: 20170316
